FAERS Safety Report 6162683-8 (Version None)
Quarter: 2009Q2

REPORT INFORMATION
  Report Type: 
  Country: None (occurrence: None)
  Receive Date: 20090417
  Receipt Date: 20090410
  Transmission Date: 20091009
  Serious: Yes (Other)
  Sender: FDA-Public Use
  Company Number: 2009JP001654

PATIENT
  Age: 76 Year
  Sex: Male
  Weight: 65 kg

DRUGS (7)
  1. VESICARE [Suspect]
     Indication: HYPERTONIC BLADDER
     Dosage: 5 MG, UID/QD, ORAL
     Route: 048
     Dates: start: 20090219, end: 20090311
  2. LAXOBERON (SODIUM PICOSULFATE) TABLET [Concomitant]
  3. MAGNESIUM OXIDE (MAGNESIUM OXIDE) PER ORAL NOS [Concomitant]
  4. BASEN (VOGLIBOSE) ORODISPERSIBLE CR TABLET [Concomitant]
  5. CLARITHROMYCIN [Concomitant]
  6. BAYASPIRIN TABLET [Concomitant]
  7. ARTZ (HYALURONATE SODIUM) INJECTION [Concomitant]

REACTIONS (5)
  - ALANINE AMINOTRANSFERASE INCREASED [None]
  - ASPARTATE AMINOTRANSFERASE INCREASED [None]
  - BLOOD ALKALINE PHOSPHATASE INCREASED [None]
  - BLOOD LACTATE DEHYDROGENASE INCREASED [None]
  - HEPATIC FUNCTION ABNORMAL [None]
